FAERS Safety Report 6944671-4 (Version None)
Quarter: 2010Q3

REPORT INFORMATION
  Report Type: 
  Country: None (occurrence: None)
  Receive Date: 20100827
  Receipt Date: 20100824
  Transmission Date: 20110219
  Serious: Yes (Hospitalization)
  Sender: FDA-Public Use
  Company Number: US-ELI_LILLY_AND_COMPANY-US201008006821

PATIENT
  Sex: Male
  Weight: 91.156 kg

DRUGS (8)
  1. GEMCITABINE HCL [Suspect]
     Indication: PANCREATIC CARCINOMA METASTATIC
     Dosage: 1000 MG/M2, UNK
     Dates: start: 20091222, end: 20091222
  2. OTHER PHARMA COMPANY INV DRUG [Suspect]
     Indication: PANCREATIC CARCINOMA METASTATIC
     Dosage: 48 MG/KG, UNK
     Dates: start: 20091222, end: 20091222
  3. METHADONE [Concomitant]
  4. PANCREASE [Concomitant]
  5. OMEPRAZOLE [Concomitant]
  6. MORPHINE [Concomitant]
     Route: 042
  7. MORPHINE SULFATE [Concomitant]
     Route: 048
  8. COLACE [Concomitant]

REACTIONS (3)
  - ANAEMIA [None]
  - GASTROINTESTINAL HAEMORRHAGE [None]
  - SEPSIS [None]
